FAERS Safety Report 20946185 (Version 3)
Quarter: 2023Q1

REPORT INFORMATION
  Report Type: Report from Study
  Country: US (occurrence: US)
  Receive Date: 20220610
  Receipt Date: 20230306
  Transmission Date: 20230418
  Serious: Yes (Hospitalization)
  Sender: FDA-Public Use
  Company Number: US-JNJFOC-20220613833

PATIENT
  Age: 46 Year
  Sex: Male
  Weight: 68.6 kg

DRUGS (7)
  1. TRABECTEDIN [Suspect]
     Active Substance: TRABECTEDIN
     Indication: Ewing^s sarcoma
     Route: 042
     Dates: start: 20220427, end: 20220430
  2. TRABECTEDIN [Suspect]
     Active Substance: TRABECTEDIN
     Route: 042
     Dates: start: 20220524, end: 20220524
  3. IRINOTECAN [Suspect]
     Active Substance: IRINOTECAN
     Indication: Ewing^s sarcoma
     Route: 042
     Dates: start: 20220427, end: 20220430
  4. IRINOTECAN [Suspect]
     Active Substance: IRINOTECAN
     Route: 042
     Dates: start: 20220525, end: 20220527
  5. TOPRIM [Concomitant]
     Dosage: 800MG /160 MG
  6. DEXAMETHASONE [Concomitant]
     Active Substance: DEXAMETHASONE
     Dates: start: 20220524, end: 20220528
  7. ONDANSETRON [Concomitant]
     Active Substance: ONDANSETRON

REACTIONS (1)
  - Acute kidney injury [Unknown]

NARRATIVE: CASE EVENT DATE: 20220531
